FAERS Safety Report 14122880 (Version 1)
Quarter: 2017Q4

REPORT INFORMATION
  Report Type: Spontaneous
  Country: US (occurrence: US)
  Receive Date: 20171024
  Receipt Date: 20171024
  Transmission Date: 20180321
  Serious: Yes (Other)
  Sender: FDA-Public Use
  Company Number: None

PATIENT
  Age: 33 Year
  Sex: Female
  Weight: 54 kg

DRUGS (3)
  1. MULTI GUMMIE VITAMON [Concomitant]
  2. SOOLANTRA [Suspect]
     Active Substance: IVERMECTIN
     Indication: ROSACEA
     Dosage: ?          QUANTITY:1 PEA SIZE AMOUNT;?
     Route: 061
     Dates: start: 20171018, end: 20171021
  3. MONONESSA [Concomitant]
     Active Substance: ETHINYL ESTRADIOL\NORGESTIMATE

REACTIONS (8)
  - Rash erythematous [None]
  - Pruritus [None]
  - Blister [None]
  - Rash [None]
  - Skin disorder [None]
  - Feeling hot [None]
  - Skin irritation [None]
  - Erythema [None]

NARRATIVE: CASE EVENT DATE: 20171021
